FAERS Safety Report 7334444-5 (Version None)
Quarter: 2011Q1

REPORT INFORMATION
  Report Type: 
  Country: None (occurrence: None)
  Receive Date: 20110307
  Receipt Date: 20110304
  Transmission Date: 20110831
  Serious: Yes (Death)
  Sender: FDA-Public Use
  Company Number: PHHY2011TH16985

PATIENT
  Age: 78 Year
  Sex: Female

DRUGS (1)
  1. ACLASTA [Suspect]
     Indication: OSTEOPOROSIS

REACTIONS (1)
  - PNEUMONITIS [None]
